FAERS Safety Report 8645436 (Version 2)
Quarter: 2013Q1

REPORT INFORMATION
  Report Type: Spontaneous
  Country: FR (occurrence: FR)
  Receive Date: 20120702
  Receipt Date: 20130104
  Transmission Date: 20140127
  Serious: Yes (Hospitalization, Other)
  Sender: FDA-Public Use
  Company Number: FR-AMGEN-FRASP2012039769

PATIENT
  Age: 40 Year
  Sex: Male

DRUGS (7)
  1. ENBREL [Suspect]
     Indication: PSORIASIS
     Dosage: 50 MG, WEEKLY
     Route: 058
     Dates: start: 20111117, end: 20120531
  2. CORTANCYL [Concomitant]
     Indication: SARCOIDOSIS
     Dosage: 4 MG, ONCE DAILY
     Route: 048
     Dates: start: 2003
  3. DIFFU K [Concomitant]
     Indication: PRODUCT USED FOR UNKNOWN INDICATION
     Dosage: UNK
     Route: 048
  4. MOPRAL                             /00661201/ [Concomitant]
     Dosage: UNK
  5. CACIT D3 [Concomitant]
     Indication: PRODUCT USED FOR UNKNOWN INDICATION
     Dosage: UNK
  6. METFORMIN [Concomitant]
     Indication: TYPE 2 DIABETES MELLITUS
     Dosage: 1 DF, 2X/DAY
     Dates: start: 201202
  7. RIFINAH [Concomitant]
     Indication: PRODUCT USED FOR UNKNOWN INDICATION
     Dosage: UNK
     Dates: start: 201110, end: 201201

REACTIONS (5)
  - Sarcoidosis [Recovering/Resolving]
  - Asthenia [Recovering/Resolving]
  - Dyspnoea [Recovering/Resolving]
  - Chest X-ray abnormal [Recovering/Resolving]
  - Interstitial lung disease [Not Recovered/Not Resolved]
